FAERS Safety Report 5121531-5 (Version None)
Quarter: 2006Q4

REPORT INFORMATION
  Report Type: 
  Country: None (occurrence: None)
  Receive Date: 20061006
  Receipt Date: 20041005
  Transmission Date: 20070319
  Serious: Yes (Life-Threatening, Hospitalization)
  Sender: FDA-Public Use
  Company Number: 2006AC01789

PATIENT
  Age: 35 Year
  Sex: Male

DRUGS (3)
  1. AMITRIPTYLINE HCL [Suspect]
     Indication: DEPRESSION
     Route: 048
  2. PAROXETINE HCL [Concomitant]
     Indication: DEPRESSION
  3. PAROXETINE HCL [Concomitant]
     Indication: ANXIETY

REACTIONS (7)
  - COMA [None]
  - ELECTROCARDIOGRAM QRS COMPLEX PROLONGED [None]
  - INTENTIONAL OVERDOSE [None]
  - LOSS OF CONSCIOUSNESS [None]
  - RESPIRATORY DEPRESSION [None]
  - RHABDOMYOLYSIS [None]
  - SUICIDE ATTEMPT [None]
